FAERS Safety Report 9049145 (Version 3)
Quarter: 2013Q2

REPORT INFORMATION
  Report Type: Spontaneous
  Country: US (occurrence: US)
  Receive Date: 20130205
  Receipt Date: 20130515
  Transmission Date: 20140414
  Serious: No
  Sender: FDA-Public Use
  Company Number: US-PFIZER INC-2013044835

PATIENT
  Age: 71 Year
  Sex: Male

DRUGS (3)
  1. CELEBREX [Suspect]
     Indication: OSTEOARTHRITIS
     Dosage: 200 MG, 1 QD
     Route: 048
     Dates: start: 20120612
  2. ASA [Suspect]
     Dosage: UNK
     Dates: end: 201210
  3. HYDROCODONE [Concomitant]
     Dosage: UNK
     Dates: end: 201210

REACTIONS (2)
  - Hepatic enzyme increased [Unknown]
  - Liver function test abnormal [Unknown]
